FAERS Safety Report 7142682-X (Version None)
Quarter: 2010Q4

REPORT INFORMATION
  Report Type: 
  Country: None (occurrence: None)
  Receive Date: 20101207
  Receipt Date: 20101202
  Transmission Date: 20110411
  Serious: Yes (Death)
  Sender: FDA-Public Use
  Company Number: JP-GENENTECH-309805

PATIENT
  Sex: Male

DRUGS (5)
  1. GRTPA [Suspect]
     Indication: CEREBRAL INFARCTION
     Dosage: 30 MG, UNK
     Route: 042
     Dates: start: 20101006, end: 20101006
  2. CONCOMITANT DRUG [Concomitant]
     Indication: PRODUCT USED FOR UNKNOWN INDICATION
     Dosage: 200 ML, UNK
     Route: 041
     Dates: start: 20101006
  3. NEO-MINOPHAGEN C [Concomitant]
     Indication: PRODUCT USED FOR UNKNOWN INDICATION
     Dosage: 20 ML, UNK
     Route: 041
     Dates: start: 20101006
  4. TATHION [Concomitant]
     Indication: PRODUCT USED FOR UNKNOWN INDICATION
     Dosage: 200 MG, UNK
     Route: 041
     Dates: start: 20101006
  5. ZANTAC [Concomitant]
     Indication: PRODUCT USED FOR UNKNOWN INDICATION
     Dosage: 100 MG, UNK
     Route: 041
     Dates: start: 20101006

REACTIONS (1)
  - AORTIC ANEURYSM RUPTURE [None]
